FAERS Safety Report 16744161 (Version 3)
Quarter: 2019Q3

REPORT INFORMATION
  Report Type: Spontaneous
  Country: US (occurrence: US)
  Receive Date: 20190827
  Receipt Date: 20190827
  Transmission Date: 20191005
  Serious: Yes (Other)
  Sender: FDA-Public Use
  Company Number: PHEH2019US034508

PATIENT
  Sex: Male

DRUGS (5)
  1. BRIMONIDINE TARTRATE (ALC) [Suspect]
     Active Substance: BRIMONIDINE TARTRATE
     Indication: GLAUCOMA
     Dosage: 2 OT, QD (7 AM AND 7 PM)
     Route: 065
  2. DORZOLAMIDE HYDROCHLORIDE. [Suspect]
     Active Substance: DORZOLAMIDE HYDROCHLORIDE
     Indication: GLAUCOMA
     Dosage: 1 DRP, QD
     Route: 065
  3. COMBIGAN [Suspect]
     Active Substance: BRIMONIDINE TARTRATE\TIMOLOL MALEATE
     Indication: GLAUCOMA
     Dosage: UNK
     Route: 047
  4. TIMOLOL. [Suspect]
     Active Substance: TIMOLOL
     Indication: GLAUCOMA
     Dosage: 1 DRP, BID (AT 7 AM AND 7 PM)
     Route: 065
  5. LATANOPROST. [Suspect]
     Active Substance: LATANOPROST
     Indication: GLAUCOMA
     Dosage: 1 DRP, QHS
     Route: 065
     Dates: start: 2017

REACTIONS (13)
  - Skin exfoliation [Unknown]
  - Intraocular pressure increased [Not Recovered/Not Resolved]
  - Swelling of eyelid [Recovered/Resolved]
  - Eye irritation [Unknown]
  - Exposure via skin contact [Unknown]
  - Dry skin [Unknown]
  - Glaucoma [Not Recovered/Not Resolved]
  - Swelling face [Recovered/Resolved]
  - Blindness [Not Recovered/Not Resolved]
  - Drug ineffective [Unknown]
  - Hypersensitivity [Unknown]
  - Drug intolerance [Unknown]
  - Eyelid margin crusting [Recovered/Resolved]
